FAERS Safety Report 5938830-7 (Version None)
Quarter: 2008Q4

REPORT INFORMATION
  Report Type: 
  Country: None (occurrence: None)
  Receive Date: 20081103
  Receipt Date: 20081028
  Transmission Date: 20090506
  Serious: Yes (Other)
  Sender: FDA-Public Use
  Company Number: US-ELI_LILLY_AND_COMPANY-US200808005406

PATIENT
  Sex: Male

DRUGS (5)
  1. HUMULIN 70/30 [Suspect]
  2. GLUCOPHAGE [Concomitant]
  3. FISH OIL [Concomitant]
  4. ASPIRIN [Concomitant]
  5. CALCIUM [Concomitant]

REACTIONS (4)
  - BLOOD GLUCOSE INCREASED [None]
  - COLON CANCER [None]
  - HEPATIC CANCER METASTATIC [None]
  - LUNG CANCER METASTATIC [None]
